FAERS Safety Report 22175374 (Version 3)
Quarter: 2023Q4

REPORT INFORMATION
  Report Type: Spontaneous
  Country: TR (occurrence: TR)
  Receive Date: 20230405
  Receipt Date: 20231018
  Transmission Date: 20240109
  Serious: Yes (Other)
  Sender: FDA-Public Use
  Company Number: TR-BAYER-2023A042394

PATIENT
  Age: 82 Year
  Sex: Female

DRUGS (1)
  1. EYLEA [Suspect]
     Active Substance: AFLIBERCEPT
     Indication: Retinal neovascularisation
     Dosage: SIX INJECTIONS GIVEN TO RIGHT EYE; SOLUTION FOR INJECTION
     Dates: start: 201704, end: 202009

REACTIONS (6)
  - Retinal haemorrhage [Unknown]
  - Visual acuity reduced [Unknown]
  - Retinal oedema [Unknown]
  - Retinal disorder [Unknown]
  - Cataract [Unknown]
  - Macular detachment [Unknown]
